FAERS Safety Report 11743017 (Version 1)
Quarter: 2015Q4

REPORT INFORMATION
  Report Type: Spontaneous
  Country: US (occurrence: US)
  Receive Date: 20151116
  Receipt Date: 20151116
  Transmission Date: 20160304
  Serious: No
  Sender: FDA-Public Use
  Company Number: US-ACTELION PHARMACEUTICALS US, INC.-A-US2015-112923

PATIENT
  Age: 63 Year
  Sex: Female

DRUGS (5)
  1. REMODULIN [Concomitant]
     Active Substance: TREPROSTINIL
  2. TRACLEER [Suspect]
     Active Substance: BOSENTAN
     Indication: PULMONARY ARTERIAL HYPERTENSION
     Dosage: UNK
     Route: 048
  3. COREG [Concomitant]
     Active Substance: CARVEDILOL
  4. DIGOXIN. [Concomitant]
     Active Substance: DIGOXIN
  5. ADCIRCA [Concomitant]
     Active Substance: TADALAFIL

REACTIONS (3)
  - Pyrexia [Recovered/Resolved]
  - Hernia [Unknown]
  - Vomiting [Recovering/Resolving]

NARRATIVE: CASE EVENT DATE: 20150204
